FAERS Safety Report 5049676-9 (Version None)
Quarter: 2006Q3

REPORT INFORMATION
  Report Type: 
  Country: None (occurrence: None)
  Receive Date: 20060706
  Receipt Date: 20060620
  Transmission Date: 20061208
  Serious: Yes (Hospitalization, Other)
  Sender: FDA-Public Use
  Company Number: 200611693GDS

PATIENT
  Age: 64 Year
  Sex: Male
  Weight: 82 kg

DRUGS (26)
  1. SORAFENIB [Suspect]
     Indication: RENAL CELL CARCINOMA STAGE UNSPECIFIED
     Dosage: 400 MG, QD, ORAL; SEE IMAGE
     Route: 048
     Dates: start: 20050621, end: 20050816
  2. SORAFENIB [Suspect]
     Indication: RENAL CELL CARCINOMA STAGE UNSPECIFIED
     Dosage: 400 MG, QD, ORAL; SEE IMAGE
     Route: 048
     Dates: start: 20050620
  3. SORAFENIB [Suspect]
     Dosage: 400 MG, QD, ORAL; SEE IMAGE
     Route: 048
     Dates: start: 20050818, end: 20051018
  4. SORAFENIB [Suspect]
     Dosage: 400 MG, QD, ORAL; SEE IMAGE
     Route: 048
     Dates: start: 20050817
  5. SORAFENIB [Suspect]
     Dosage: 400 MG, QD, ORAL; SEE IMAGE
     Route: 048
     Dates: start: 20051020, end: 20051213
  6. SORAFENIB [Suspect]
     Dosage: 400 MG, QD, ORAL; SEE IMAGE
     Route: 048
     Dates: start: 20051019
  7. SORAFENIB [Suspect]
     Dosage: 400 MG, QD, ORAL; SEE IMAGE
     Route: 048
     Dates: start: 20060429
  8. SORAFENIB [Suspect]
     Dosage: 400 MG, QD, ORAL; SEE IMAGE
     Route: 048
     Dates: start: 20051215, end: 20051221
  9. SORAFENIB [Suspect]
     Dosage: 400 MG, QD, ORAL; SEE IMAGE
     Route: 048
     Dates: start: 20051214
  10. SORAFENIB [Suspect]
     Dosage: 400 MG, BID, ORAL; SEE IMAGE
     Route: 048
     Dates: start: 20051222, end: 20060214
  11. SORAFENIB [Suspect]
     Dosage: 400 MG, BID, ORAL; SEE IMAGE
     Route: 048
     Dates: start: 20060214, end: 20060420
  12. SORAFENIB [Suspect]
     Dosage: 400 MG, BID, ORAL; SEE IMAGE
     Route: 048
     Dates: start: 20060421
  13. BISOCARD [Concomitant]
  14. BLOCARD [Concomitant]
  15. ZOCOR [Concomitant]
  16. GENSULIN [Concomitant]
  17. AMLOPIN [Concomitant]
  18. KREON [Concomitant]
  19. EUTHYROX [Concomitant]
  20. LOPERAMIDE [Concomitant]
  21. SODIUM CHLORIDE [Concomitant]
  22. ARTRESAN [Concomitant]
  23. METIZOL [THIAMAZOLE] [Concomitant]
  24. KALIPOZ [Concomitant]
  25. ALFADIOL [Concomitant]
  26. SPIRONOL [Concomitant]

REACTIONS (5)
  - BLOOD MAGNESIUM DECREASED [None]
  - BLOOD PHOSPHORUS DECREASED [None]
  - HYPOCALCAEMIA [None]
  - HYPOTHYROIDISM [None]
  - NEPHROGENIC ANAEMIA [None]
